FAERS Safety Report 26059974 (Version 1)
Quarter: 2025Q4

REPORT INFORMATION
  Report Type: Spontaneous
  Country: US (occurrence: US)
  Receive Date: 20251118
  Receipt Date: 20251118
  Transmission Date: 20260117
  Serious: Yes (Death)
  Sender: ROCHE
  Company Number: US-ROCHE-10000434383

PATIENT
  Sex: Male

DRUGS (5)
  1. ERIVEDGE [Suspect]
     Active Substance: VISMODEGIB
     Indication: Blood pressure measurement
     Route: 048
  2. levothyroxin tab 100 mcg [Concomitant]
  3. metformin HC tab 1000 mg [Concomitant]
  4. metoprolol t tab 50 mg [Concomitant]
  5. omeprazole cpd 40 mg [Concomitant]

REACTIONS (1)
  - Death [Fatal]
